FAERS Safety Report 5736642-0 (Version None)
Quarter: 2008Q2

REPORT INFORMATION
  Report Type: 
  Country: None (occurrence: None)
  Receive Date: 20080513
  Receipt Date: 20080505
  Transmission Date: 20081010
  Serious: Yes (Death, Other)
  Sender: FDA-Public Use
  Company Number: US-WYE-H03971008

PATIENT
  Sex: Female

DRUGS (5)
  1. PREMARIN [Suspect]
  2. PREMARIN [Suspect]
  3. DELESTROGEN [Suspect]
  4. ESTRACE [Suspect]
  5. PROVERA [Suspect]

REACTIONS (1)
  - BREAST CANCER [None]
